FAERS Safety Report 7237781-8 (Version None)
Quarter: 2011Q1

REPORT INFORMATION
  Report Type: 
  Country: None (occurrence: None)
  Receive Date: 20110121
  Receipt Date: 20110113
  Transmission Date: 20110831
  Serious: Yes (Hospitalization)
  Sender: FDA-Public Use
  Company Number: JP-ROCHE-751991

PATIENT
  Sex: Male
  Weight: 50 kg

DRUGS (17)
  1. PREDNISOLONE [Concomitant]
     Route: 048
     Dates: start: 20071214, end: 20091108
  2. PREDNISOLONE [Concomitant]
     Route: 048
     Dates: start: 20091207, end: 20100131
  3. PREDNISOLONE [Concomitant]
     Route: 048
     Dates: start: 20100201, end: 20100228
  4. PREDNISOLONE [Concomitant]
     Route: 048
     Dates: start: 20100301, end: 20100905
  5. LOXONIN [Concomitant]
     Route: 048
     Dates: start: 20060421
  6. ACTEMRA [Suspect]
     Route: 041
     Dates: start: 20091013, end: 20091013
  7. ACTEMRA [Suspect]
     Route: 041
     Dates: start: 20091207, end: 20091207
  8. ACTEMRA [Suspect]
     Route: 041
     Dates: start: 20100201, end: 20100201
  9. RHEUMATREX [Concomitant]
     Route: 048
     Dates: start: 20070720
  10. FOLIAMIN [Concomitant]
     Route: 048
     Dates: start: 20080229
  11. PREDNISOLONE [Concomitant]
     Route: 048
     Dates: start: 20101101
  12. ACTEMRA [Suspect]
     Route: 041
     Dates: start: 20100301, end: 20101227
  13. ACTEMRA [Suspect]
     Indication: RHEUMATOID ARTHRITIS
     Route: 041
     Dates: start: 20090914, end: 20090914
  14. ACTEMRA [Suspect]
     Route: 041
     Dates: start: 20100104, end: 20100104
  15. PREDNISOLONE [Concomitant]
     Route: 048
     Dates: start: 20091109, end: 20091206
  16. ACTEMRA [Suspect]
     Route: 041
     Dates: start: 20091109, end: 20091109
  17. PREDNISOLONE [Concomitant]
     Route: 048
     Dates: start: 20100906, end: 20101031

REACTIONS (1)
  - PERIARTHRITIS [None]
